FAERS Safety Report 4391963-1 (Version None)
Quarter: 2004Q3

REPORT INFORMATION
  Report Type: 
  Country: None (occurrence: None)
  Receive Date: 20040701
  Receipt Date: 20040625
  Transmission Date: 20050211
  Serious: Yes (Death)
  Sender: FDA-Public Use
  Company Number: US-SHR-04-020854

PATIENT
  Age: 51 Year
  Sex: Male

DRUGS (1)
  1. BETASERON(INTERFERON BETA 0 1B) INJECTION, 250UG [Suspect]
     Indication: MULTIPLE SCLEROSIS
     Dosage: SUBCUTANEOUS
     Route: 058
     Dates: start: 20011212

REACTIONS (1)
  - DEATH [None]
